FAERS Safety Report 9314393 (Version 1)
Quarter: 2013Q2

REPORT INFORMATION
  Report Type: Spontaneous
  Country: US (occurrence: None)
  Receive Date: 20130524
  Receipt Date: 20130524
  Transmission Date: 20140414
  Serious: No
  Sender: FDA-Public Use
  Company Number: None

PATIENT
  Age: 57 Year
  Sex: Female
  Weight: 52.16 kg

DRUGS (1)
  1. XYREM [Suspect]
     Indication: NARCOLEPSY
     Dosage: 4 GM DILUTED
     Route: 048
     Dates: start: 20101101, end: 20130523

REACTIONS (5)
  - Restlessness [None]
  - Insomnia [None]
  - Hypersomnia [None]
  - Medication residue present [None]
  - Product quality issue [None]
